FAERS Safety Report 19847683 (Version 2)
Quarter: 2021Q3

REPORT INFORMATION
  Report Type: Spontaneous
  Country: SI (occurrence: SI)
  Receive Date: 20210917
  Receipt Date: 20210921
  Transmission Date: 20211014
  Serious: Yes (Death, Other)
  Sender: FDA-Public Use
  Company Number: SI-SERVIER-S21010249

PATIENT

DRUGS (1)
  1. ONCASPAR [Suspect]
     Active Substance: PEGASPARGASE
     Indication: B-CELL TYPE ACUTE LEUKAEMIA
     Dosage: UNK
     Route: 042
     Dates: start: 20210817, end: 20210823

REACTIONS (8)
  - Pupils unequal [Unknown]
  - Acute sinusitis [Unknown]
  - Headache [Unknown]
  - Hemiparesis [Unknown]
  - Peripheral venous disease [Unknown]
  - Haemorrhagic transformation stroke [Unknown]
  - Hernia [Fatal]
  - Carotid artery insufficiency [Unknown]

NARRATIVE: CASE EVENT DATE: 20210823
